FAERS Safety Report 4641275-3 (Version None)
Quarter: 2005Q2

REPORT INFORMATION
  Report Type: 
  Country: None (occurrence: None)
  Receive Date: 20050420
  Receipt Date: 20050420
  Transmission Date: 20051028
  Serious: Yes (Hospitalization)
  Sender: FDA-Public Use
  Company Number: None

PATIENT
  Age: 79 Year
  Sex: Female

DRUGS (9)
  1. DIGOXIN [Suspect]
  2. METOPROLOL TARTRATE [Concomitant]
  3. LASIX [Concomitant]
  4. AMLODIPINE [Concomitant]
  5. HYDROCHLOROTHIAZIDE [Concomitant]
  6. METFORMIN HCL [Concomitant]
  7. WARFARIN SODIUM [Concomitant]
  8. SIMVASTATIN [Concomitant]
  9. NITROGLYCERIN [Concomitant]

REACTIONS (6)
  - ASTHENIA [None]
  - BRADYCARDIA [None]
  - CARDIAC MURMUR [None]
  - CHEST PAIN [None]
  - DIZZINESS [None]
  - VOMITING [None]
